FAERS Safety Report 9225317 (Version 1)
Quarter: 2013Q2

REPORT INFORMATION
  Report Type: Spontaneous
  Country: FR (occurrence: FR)
  Receive Date: 20130411
  Receipt Date: 20130411
  Transmission Date: 20140414
  Serious: Yes (Other)
  Sender: FDA-Public Use
  Company Number: FR-ELI_LILLY_AND_COMPANY-FR201304002603

PATIENT
  Sex: Female

DRUGS (1)
  1. ALIMTA [Suspect]
     Indication: LUNG NEOPLASM MALIGNANT
     Dosage: 700 MG, UNK
     Route: 042
     Dates: end: 20130102

REACTIONS (3)
  - Urticaria [Recovered/Resolved]
  - Nasopharyngitis [Unknown]
  - Drug hypersensitivity [Unknown]
